FAERS Safety Report 9349850 (Version 1)
Quarter: 2013Q2

REPORT INFORMATION
  Report Type: Spontaneous
  Country: US (occurrence: None)
  Receive Date: 20130611
  Receipt Date: 20130611
  Transmission Date: 20140414
  Serious: Yes (Hospitalization)
  Sender: FDA-Public Use
  Company Number: B0897713A

PATIENT
  Age: 48 Year
  Sex: Female

DRUGS (1)
  1. CLOBETASOL PROPIONATE [Suspect]
     Indication: ECZEMA
     Route: 061

REACTIONS (7)
  - Adrenal insufficiency [None]
  - Lethargy [None]
  - Blood pressure increased [None]
  - Hyponatraemia [None]
  - Mental status changes [None]
  - Drug dose omission [None]
  - Withdrawal syndrome [None]
